FAERS Safety Report 18259066 (Version 2)
Quarter: 2021Q1

REPORT INFORMATION
  Report Type: Spontaneous
  Country: US (occurrence: US)
  Receive Date: 20200911
  Receipt Date: 20210317
  Transmission Date: 20210419
  Serious: Yes (Other)
  Sender: FDA-Public Use
  Company Number: US-GILEAD-2020-0494481

PATIENT
  Sex: Male
  Weight: 69.84 kg

DRUGS (43)
  1. HYDROCHLOROTHIAZIDE. [Concomitant]
     Active Substance: HYDROCHLOROTHIAZIDE
  2. HYDROCODONE [Concomitant]
     Active Substance: HYDROCODONE
  3. LANTHANUM CARBONATE. [Concomitant]
     Active Substance: LANTHANUM CARBONATE
  4. LEVOFLOXACIN. [Concomitant]
     Active Substance: LEVOFLOXACIN
  5. LIDOCAINE. [Concomitant]
     Active Substance: LIDOCAINE
  6. TRIAMCINOLONE [Concomitant]
     Active Substance: TRIAMCINOLONE
  7. WARFARIN [Concomitant]
     Active Substance: WARFARIN
  8. TENOFOVIR DISOPROXIL FUMARATE. [Suspect]
     Active Substance: TENOFOVIR DISOPROXIL FUMARATE
     Indication: PRODUCT USED FOR UNKNOWN INDICATION
     Dosage: UNK
     Route: 065
     Dates: start: 2017
  9. CALCIPOTRIENE. [Concomitant]
     Active Substance: CALCIPOTRIENE
  10. CLOPIDOGREL [Concomitant]
     Active Substance: CLOPIDOGREL BISULFATE
  11. ELIQUIS [Concomitant]
     Active Substance: APIXABAN
  12. MYCOPHENOLATE [Concomitant]
     Active Substance: MYCOPHENOLIC ACID
  13. STIOLTO RESPIMAT [Concomitant]
     Active Substance: OLODATEROL HYDROCHLORIDE\TIOTROPIUM BROMIDE MONOHYDRATE
  14. LACLOTION [Concomitant]
     Active Substance: AMMONIUM LACTATE
  15. METOPROLOL TARTRATE. [Concomitant]
     Active Substance: METOPROLOL TARTRATE
  16. NYSTATIN;TRIAMCINOLONE [Concomitant]
  17. AMMON [Concomitant]
  18. ASTEPRO [Concomitant]
     Active Substance: AZELASTINE HYDROCHLORIDE
  19. COMBIVENT [Concomitant]
     Active Substance: ALBUTEROL SULFATE\IPRATROPIUM BROMIDE
  20. HYDRALAZINE [Concomitant]
     Active Substance: HYDRALAZINE HYDROCHLORIDE
  21. LOSARTAN. [Concomitant]
     Active Substance: LOSARTAN
  22. SUPREP BOWEL PREP [Concomitant]
     Active Substance: MAGNESIUM SULFATE\POTASSIUM SULFATE\SODIUM SULFATE
  23. TERBINAFINE. [Concomitant]
     Active Substance: TERBINAFINE
  24. AMLODIPINE [Concomitant]
     Active Substance: AMLODIPINE BESYLATE
  25. FLUTICASONE. [Concomitant]
     Active Substance: FLUTICASONE
  26. TAMSULOSIN [Concomitant]
     Active Substance: TAMSULOSIN
  27. VIREAD [Suspect]
     Active Substance: TENOFOVIR DISOPROXIL FUMARATE
     Indication: PRODUCT USED FOR UNKNOWN INDICATION
     Dosage: UNK
     Route: 048
     Dates: start: 20090609, end: 20190306
  28. AMLIP [AMLODIPINE BESILATE] [Concomitant]
     Active Substance: AMLODIPINE BESYLATE
  29. CELLCEPT [Concomitant]
     Active Substance: MYCOPHENOLATE MOFETIL\MYCOPHENOLATE MOFETIL HYDROCHLORIDE
  30. LISINOPRIL. [Concomitant]
     Active Substance: LISINOPRIL
  31. TACROLIMUS. [Concomitant]
     Active Substance: TACROLIMUS
  32. FUROSEMIDE. [Concomitant]
     Active Substance: FUROSEMIDE
  33. FERROUS SULFATE. [Concomitant]
     Active Substance: FERROUS SULFATE
  34. METOPROLOL. [Concomitant]
     Active Substance: METOPROLOL
  35. NITROGLYCERIN. [Concomitant]
     Active Substance: NITROGLYCERIN
  36. EPIVIR [Concomitant]
     Active Substance: LAMIVUDINE
  37. BUDESONIDE. [Concomitant]
     Active Substance: BUDESONIDE
  38. CILOSTAZOL. [Concomitant]
     Active Substance: CILOSTAZOL
  39. LABETALOL [Concomitant]
     Active Substance: LABETALOL\LABETALOL HYDROCHLORIDE
  40. LOVAZA [Concomitant]
     Active Substance: OMEGA-3-ACID ETHYL ESTERS
  41. PREDNISONE. [Concomitant]
     Active Substance: PREDNISONE
  42. PROGRAF [Concomitant]
     Active Substance: TACROLIMUS
  43. VITAMIN D3 [Concomitant]
     Active Substance: CHOLECALCIFEROL

REACTIONS (10)
  - Anaemia [Not Recovered/Not Resolved]
  - Anxiety [Unknown]
  - Gout [Not Recovered/Not Resolved]
  - Anhedonia [Unknown]
  - Hypokalaemia [Recovered/Resolved]
  - Emotional distress [Unknown]
  - Renal injury [Unknown]
  - Pain [Unknown]
  - End stage renal disease [Recovered/Resolved]
  - Renal impairment [Unknown]

NARRATIVE: CASE EVENT DATE: 2009
